FAERS Safety Report 5407754-6 (Version None)
Quarter: 2007Q3

REPORT INFORMATION
  Report Type: 
  Country: None (occurrence: None)
  Receive Date: 20070807
  Receipt Date: 20070726
  Transmission Date: 20080115
  Serious: Yes (Other)
  Sender: FDA-Public Use
  Company Number: US-PFIZER INC-2007062603

PATIENT
  Sex: Male

DRUGS (5)
  1. DILANTIN KAPSEAL [Suspect]
     Indication: CONVULSION
  2. DILANTIN KAPSEAL [Suspect]
  3. MULTIVITAMIN [Concomitant]
  4. FOLIC ACID [Concomitant]
  5. STOOL SOFTENER [Concomitant]

REACTIONS (3)
  - ANTICONVULSANT DRUG LEVEL DECREASED [None]
  - ANTICONVULSANT DRUG LEVEL INCREASED [None]
  - NASOPHARYNGITIS [None]
